FAERS Safety Report 5223140-6 (Version None)
Quarter: 2007Q1

REPORT INFORMATION
  Report Type: 
  Country: None (occurrence: None)
  Receive Date: 20070129
  Receipt Date: 20070118
  Transmission Date: 20070707
  Serious: Yes (Other)
  Sender: FDA-Public Use
  Company Number: DE-PFIZER INC-2007005546

PATIENT
  Sex: Male

DRUGS (1)
  1. CABASERIL [Suspect]
     Indication: PARKINSON'S DISEASE
     Route: 048

REACTIONS (2)
  - BLOOD PRESSURE INCREASED [None]
  - ORTHOSTATIC HYPERTENSION [None]
